FAERS Safety Report 5138590-6 (Version None)
Quarter: 2006Q4

REPORT INFORMATION
  Report Type: 
  Country: None (occurrence: None)
  Receive Date: 20061024
  Receipt Date: 20060927
  Transmission Date: 20070319
  Serious: Yes (Other)
  Sender: FDA-Public Use
  Company Number: 2006SP003152

PATIENT
  Sex: Female

DRUGS (2)
  1. PEG-INTRON [Suspect]
     Indication: HEPATITIS C
     Dates: start: 20030101
  2. RIBAVIRIN [Suspect]
     Indication: HEPATITIS C
     Dates: start: 20030101

REACTIONS (5)
  - BLOOD CALCIUM INCREASED [None]
  - HYPERPARATHYROIDISM [None]
  - PHARYNGEAL OEDEMA [None]
  - THYROID DISORDER [None]
  - VISUAL DISTURBANCE [None]
